FAERS Safety Report 26035618 (Version 1)
Quarter: 2025Q4

REPORT INFORMATION
  Report Type: Spontaneous
  Country: US (occurrence: US)
  Receive Date: 20251112
  Receipt Date: 20251112
  Transmission Date: 20260118
  Serious: No
  Sender: RECKITT BENCKISER
  Company Number: US-PROD-AS2-212756134-20-24-USA-RB-0012822

PATIENT
  Sex: Female

DRUGS (3)
  1. DELSYM [Suspect]
     Active Substance: DEXTROMETHORPHAN
     Indication: Sinus operation
     Dosage: UNKNOWN
     Route: 048
  2. DELSYM [Suspect]
     Active Substance: DEXTROMETHORPHAN
     Indication: Cough
  3. DELSYM [Suspect]
     Active Substance: DEXTROMETHORPHAN
     Indication: Oropharyngeal pain

REACTIONS (1)
  - Drug ineffective [Not Recovered/Not Resolved]
